FAERS Safety Report 9871512 (Version 1)
Quarter: 2014Q1

REPORT INFORMATION
  Report Type: Spontaneous
  Country: US (occurrence: None)
  Receive Date: 20140204
  Receipt Date: 20140204
  Transmission Date: 20141002
  Serious: Yes (Other)
  Sender: FDA-Public Use
  Company Number: None

PATIENT
  Age: 38 Year
  Sex: Female

DRUGS (2)
  1. PRILOSEC [Suspect]
  2. LISINOPRIL [Concomitant]

REACTIONS (4)
  - Dyspnoea [None]
  - Dysphagia [None]
  - Haematochezia [None]
  - Mucous stools [None]
